FAERS Safety Report 16242836 (Version 2)
Quarter: 2019Q2

REPORT INFORMATION
  Report Type: Spontaneous
  Country: GB (occurrence: GB)
  Receive Date: 20190426
  Receipt Date: 20190501
  Transmission Date: 20190711
  Serious: Yes (Hospitalization, Other)
  Sender: FDA-Public Use
  Company Number: GB-MYLANLABS-2019M1038077

PATIENT
  Sex: Male

DRUGS (3)
  1. ARIPIPRAZOLE. [Suspect]
     Active Substance: ARIPIPRAZOLE
     Indication: SCHIZOPHRENIA
     Dosage: UNK
     Route: 065
  2. CLOPIXOL                           /00876702/ [Suspect]
     Active Substance: ZUCLOPENTHIXOL ACETATE
     Dosage: 600 MILLIGRAM, QW
     Route: 065
  3. CLOPIXOL                           /00876702/ [Suspect]
     Active Substance: ZUCLOPENTHIXOL ACETATE
     Indication: SCHIZOPHRENIA
     Dosage: 500 MG, QW
     Route: 065
     Dates: start: 201709

REACTIONS (21)
  - Hyperhidrosis [Unknown]
  - White blood cell count increased [Unknown]
  - Malaise [Unknown]
  - Blood creatinine increased [Unknown]
  - Heart rate increased [Unknown]
  - Sinus tachycardia [Unknown]
  - Neuroleptic malignant syndrome [Recovered/Resolved]
  - Cognitive disorder [Unknown]
  - Anal incontinence [Unknown]
  - Abnormal behaviour [Unknown]
  - Urinary incontinence [Unknown]
  - Disorientation [Unknown]
  - Feeding disorder [Unknown]
  - Tachypnoea [Unknown]
  - Dizziness [Unknown]
  - Diarrhoea [Unknown]
  - Hypertonia [Unknown]
  - C-reactive protein increased [Unknown]
  - Headache [Unknown]
  - Blood creatine phosphokinase increased [Unknown]
  - Abdominal discomfort [Unknown]
